FAERS Safety Report 9977087 (Version 1)
Quarter: 2014Q1

REPORT INFORMATION
  Report Type: Report from Study
  Country: US (occurrence: US)
  Receive Date: 20140306
  Receipt Date: 20140306
  Transmission Date: 20141002
  Serious: No
  Sender: FDA-Public Use
  Company Number: US-ABBVIE-13P-163-1168006-00

PATIENT
  Sex: Female

DRUGS (1)
  1. HUMIRA [Suspect]
     Indication: RHEUMATOID ARTHRITIS
     Route: 058
     Dates: start: 20130620, end: 20131002

REACTIONS (3)
  - Flatulence [Not Recovered/Not Resolved]
  - Depression [Not Recovered/Not Resolved]
  - Pain in extremity [Not Recovered/Not Resolved]
